FAERS Safety Report 15659095 (Version 1)
Quarter: 2018Q4

REPORT INFORMATION
  Report Type: Spontaneous
  Country: IT (occurrence: IT)
  Receive Date: 20181127
  Receipt Date: 20181127
  Transmission Date: 20190205
  Serious: Yes (Hospitalization, Other)
  Sender: FDA-Public Use
  Company Number: IT-SA-2018SA316519

PATIENT
  Age: 36 Year
  Sex: Male

DRUGS (6)
  1. FOLINA [FOLIC ACID] [Concomitant]
     Dosage: UNK UNK, UNK
     Route: 065
  2. NEURONTIN [Concomitant]
     Active Substance: GABAPENTIN
     Dosage: UNK UNK, UNK
     Route: 065
  3. ARANESP [Concomitant]
     Active Substance: DARBEPOETIN ALFA
     Dosage: UNK UNK, UNK
     Route: 065
  4. RAMIPRIL. [Concomitant]
     Active Substance: RAMIPRIL
     Dosage: UNK UNK, UNK
     Route: 065
  5. FABRAZYME [Suspect]
     Active Substance: AGALSIDASE BETA
     Indication: FABRY^S DISEASE
     Dosage: 70 MG, QCY
     Route: 041
     Dates: start: 20020101
  6. CETIRIZINE [Concomitant]
     Active Substance: CETIRIZINE HYDROCHLORIDE
     Dosage: UNK UNK, UNK
     Route: 065

REACTIONS (3)
  - Hyperpyrexia [Recovered/Resolved]
  - Chills [Recovered/Resolved]
  - Vasoconstriction [Recovered/Resolved]

NARRATIVE: CASE EVENT DATE: 20181105
